FAERS Safety Report 24754908 (Version 1)
Quarter: 2024Q4

REPORT INFORMATION
  Report Type: Spontaneous
  Country: US (occurrence: None)
  Receive Date: 20241219
  Receipt Date: 20241219
  Transmission Date: 20250114
  Serious: Yes (unspecified)
  Sender: Public
  Company Number: None

PATIENT
  Age: 53 Year
  Sex: Female
  Weight: 76.5 kg

DRUGS (1)
  1. OCTAGAM IMMUNE GLOBULIN (HUMAN) [Suspect]
     Active Substance: HUMAN IMMUNOGLOBULIN G
     Indication: Chronic inflammatory demyelinating polyradiculoneuropathy
     Dosage: OTHER FREQUENCY : EVERY 3 WEEKS;?
     Route: 042
     Dates: start: 20241203

REACTIONS (8)
  - Blood pressure increased [None]
  - Chills [None]
  - Nausea [None]
  - Vomiting [None]
  - Muscle twitching [None]
  - Photosensitivity reaction [None]
  - Chronic inflammatory demyelinating polyradiculoneuropathy [None]
  - Condition aggravated [None]

NARRATIVE: CASE EVENT DATE: 20241203
